FAERS Safety Report 24144223 (Version 2)
Quarter: 2024Q3

REPORT INFORMATION
  Report Type: Report from Study
  Country: US (occurrence: US)
  Receive Date: 20240728
  Receipt Date: 20240801
  Transmission Date: 20241016
  Serious: Yes (Hospitalization)
  Sender: NOVITIUM PHARMA
  Company Number: US-NOVITIUMPHARMA-2024USNVP01404

PATIENT
  Age: 19 Year
  Sex: Male
  Weight: 118 kg

DRUGS (6)
  1. CARGLUMIC ACID [Suspect]
     Active Substance: CARGLUMIC ACID
     Indication: Urea cycle disorder
     Route: 048
     Dates: start: 20231110
  2. ASPIRIN [Concomitant]
     Active Substance: ASPIRIN
     Indication: Product used for unknown indication
  3. CARVEDILOL [Concomitant]
     Active Substance: CARVEDILOL
     Indication: Product used for unknown indication
  4. RISPERIDONE [Concomitant]
     Active Substance: RISPERIDONE
     Indication: Product used for unknown indication
  5. RISPERIDONE [Concomitant]
     Active Substance: RISPERIDONE
  6. LEVOCARNITINE [Concomitant]
     Active Substance: LEVOCARNITINE
     Indication: Product used for unknown indication

REACTIONS (1)
  - Hepatic enzyme increased [Recovering/Resolving]
